FAERS Safety Report 17031291 (Version 1)
Quarter: 2019Q4

REPORT INFORMATION
  Report Type: Spontaneous
  Country: US (occurrence: US)
  Receive Date: 20191113
  Receipt Date: 20191113
  Transmission Date: 20200122
  Serious: Yes (Hospitalization)
  Sender: FDA-Public Use
  Company Number: None

PATIENT
  Age: 88 Year
  Sex: Male
  Weight: 82.9 kg

DRUGS (12)
  1. PROTONIX 40MG PO DAILY [Concomitant]
  2. LIPITOR 40MG PO DAILY [Concomitant]
  3. ELIQUIS [Suspect]
     Active Substance: APIXABAN
     Indication: ATRIAL FIBRILLATION
     Route: 048
     Dates: start: 20190301, end: 20191007
  4. TOPROL - XL 50MG BID [Concomitant]
  5. CARAFATE 1GM PO QID [Concomitant]
  6. CARDIZEM-CD 250MG PO DAILY [Concomitant]
  7. FERROUS SULFATE 325MG PO BID [Concomitant]
  8. PLAVIX 75MG PO DAILY [Concomitant]
  9. CENTRUM PO DAILY [Concomitant]
  10. ASPIRIN 81MG PO DAILY [Concomitant]
     Active Substance: ASPIRIN
  11. FLOMAX 0.4MG PO DAILY [Concomitant]
  12. LASIX 20MG PO DAILY [Concomitant]

REACTIONS (3)
  - Gastrointestinal haemorrhage [None]
  - Transfusion [None]
  - Chest pain [None]

NARRATIVE: CASE EVENT DATE: 20191007
